FAERS Safety Report 7527682-X (Version None)
Quarter: 2011Q2

REPORT INFORMATION
  Report Type: 
  Country: None (occurrence: None)
  Receive Date: 20110527
  Receipt Date: 20110516
  Transmission Date: 20111010
  Serious: Yes (Other)
  Sender: FDA-Public Use
  Company Number: 1000021137

PATIENT
  Age: 66 Year
  Sex: Male
  Weight: 83 kg

DRUGS (6)
  1. THEOPHYLLINE (THEOPHILLINE) (THEOPHYLLINE) [Concomitant]
  2. ROFLUMILAST (ROFLUMILAST) (TABLETS) [Suspect]
     Indication: CHRONIC OBSTRUCTIVE PULMONARY DISEASE
     Dosage: 1 DF (1 DOSAGE FORMS,1 IN 1 D)
     Dates: start: 20110225, end: 20110406
  3. BERODUAL (IPRATROPIUM, FENOTEROL) (IPRATROPIUM, FENOTEROL) [Concomitant]
  4. PREDNISOLONE [Concomitant]
  5. SPIRIVA (TIOTROPIUM BROMIDE) (TIOTROPIUM BROMIDE) [Concomitant]
  6. ATACAND PULS (CANDESARTAN) [Concomitant]

REACTIONS (1)
  - SLEEP DISORDER [None]
